FAERS Safety Report 26129296 (Version 1)
Quarter: 2025Q4

REPORT INFORMATION
  Report Type: Spontaneous
  Country: EU (occurrence: EU)
  Receive Date: 20251208
  Receipt Date: 20251208
  Transmission Date: 20260117
  Serious: Yes (Other)
  Sender: CELLTRION
  Company Number: EU-AMGEN-NLDSP2025229578

PATIENT

DRUGS (2)
  1. TRASTUZUMAB [Suspect]
     Active Substance: TRASTUZUMAB
     Indication: Breast cancer
     Dosage: UNK
     Route: 065
  2. TAMOXIFEN [Concomitant]
     Active Substance: TAMOXIFEN
     Indication: Breast cancer
     Dosage: UNK

REACTIONS (5)
  - Lung adenocarcinoma stage IV [Unknown]
  - Pulmonary toxicity [Unknown]
  - Pneumonitis [Unknown]
  - EGFR gene mutation [Unknown]
  - Ejection fraction decreased [Unknown]
